FAERS Safety Report 9460692 (Version 3)
Quarter: 2013Q4

REPORT INFORMATION
  Report Type: Spontaneous
  Country: IT (occurrence: None)
  Receive Date: 20130813
  Receipt Date: 20131007
  Transmission Date: 20140711
  Serious: Yes (Hospitalization)
  Sender: FDA-Public Use
  Company Number: AUR-APL-2013-06672

PATIENT
  Age: 21 Year
  Sex: Female

DRUGS (1)
  1. LEVOFLOXACIN [Suspect]
     Indication: PRODUCT USED FOR UNKNOWN INDICATION
     Dosage: (1 DOSAGE FORMS, TOTAL), ORAL
     Route: 048
     Dates: start: 20130802, end: 20130802

REACTIONS (3)
  - Bronchospasm [None]
  - Face oedema [None]
  - Rash [None]
